FAERS Safety Report 13340614 (Version 1)
Quarter: 2017Q1

REPORT INFORMATION
  Report Type: Spontaneous
  Country: US (occurrence: US)
  Receive Date: 20170315
  Receipt Date: 20170315
  Transmission Date: 20170428
  Serious: Yes (Disabling)
  Sender: FDA-Public Use
  Company Number: None

PATIENT
  Age: 53 Year
  Sex: Female
  Weight: 90 kg

DRUGS (11)
  1. ACID REFLEX [Concomitant]
  2. VITA E [Concomitant]
  3. PROBIOTIC [Concomitant]
     Active Substance: PROBIOTICS NOS
  4. LEVAQUIN [Suspect]
     Active Substance: LEVOFLOXACIN
     Indication: PNEUMONIA
     Dosage: ?          QUANTITY:1 TABLET(S);?
     Route: 048
     Dates: start: 20161230, end: 20170106
  5. PROPRANOLOL [Concomitant]
     Active Substance: PROPRANOLOL HYDROCHLORIDE
  6. LEVOTHYROXINE. [Concomitant]
     Active Substance: LEVOTHYROXINE
  7. DAILY VITA [Concomitant]
  8. EFFEXOR [Concomitant]
     Active Substance: VENLAFAXINE HYDROCHLORIDE
  9. MAGNESIUM OX [Concomitant]
  10. IMITREX [Concomitant]
     Active Substance: SUMATRIPTAN SUCCINATE
  11. ALLEGRA [Concomitant]
     Active Substance: FEXOFENADINE HYDROCHLORIDE

REACTIONS (5)
  - Insomnia [None]
  - Drug effect incomplete [None]
  - Weight bearing difficulty [None]
  - Impaired work ability [None]
  - Pain [None]

NARRATIVE: CASE EVENT DATE: 20170102
